FAERS Safety Report 26140228 (Version 1)
Quarter: 2025Q4

REPORT INFORMATION
  Report Type: Spontaneous
  Country: US (occurrence: None)
  Receive Date: 20251210
  Receipt Date: 20251210
  Transmission Date: 20260117
  Serious: Yes (Hospitalization)
  Sender: FDA-CTU
  Company Number: None

PATIENT
  Sex: Female

DRUGS (11)
  1. LENALIDOMIDE [Suspect]
     Active Substance: LENALIDOMIDE
     Indication: Plasma cell myeloma
     Route: 048
     Dates: start: 20250513
  2. ACYCLOVIR [Concomitant]
     Active Substance: ACYCLOVIR
  3. ASPIRIN [Concomitant]
     Active Substance: ASPIRIN
  4. AZITHROMYCIN [Concomitant]
     Active Substance: AZITHROMYCIN
  5. CYCLOBENZAPRINE [Concomitant]
     Active Substance: CYCLOBENZAPRINE
  6. DARZALEX SOLFASPRO [Concomitant]
  7. DEXAMETHASONE [Concomitant]
     Active Substance: DEXAMETHASONE
  8. LENALIDOMIDE [Concomitant]
     Active Substance: LENALIDOMIDE
  9. LYRICA [Concomitant]
     Active Substance: PREGABALIN
  10. MIRENA  IUD [Concomitant]
  11. OXYCODONE [Concomitant]
     Active Substance: OXYCODONE

REACTIONS (4)
  - Fatigue [None]
  - Nausea [None]
  - Weight decreased [None]
  - Therapy interrupted [None]
